FAERS Safety Report 5989432-8 (Version None)
Quarter: 2008Q4

REPORT INFORMATION
  Report Type: 
  Country: None (occurrence: None)
  Receive Date: 20081205
  Receipt Date: 20081121
  Transmission Date: 20090506
  Serious: Yes (Hospitalization)
  Sender: FDA-Public Use
  Company Number: KV200800624

PATIENT
  Age: 85 Year
  Sex: Male

DRUGS (4)
  1. MORPHINE SULFATE [Suspect]
     Indication: BACK PAIN
     Dosage: ONE TABLET EVERY 12 HOURS, ORAL
     Route: 048
     Dates: start: 20081030, end: 20081106
  2. ANTIHYPERTENSIVES [Concomitant]
  3. COUMADIN [Concomitant]
  4. LASIX [Concomitant]

REACTIONS (3)
  - HYPOTENSION [None]
  - PRODUCT QUALITY ISSUE [None]
  - SYNCOPE [None]
